FAERS Safety Report 5109613-5 (Version None)
Quarter: 2006Q3

REPORT INFORMATION
  Report Type: 
  Country: None (occurrence: None)
  Receive Date: 20060918
  Receipt Date: 20060829
  Transmission Date: 20061208
  Serious: Yes (Hospitalization)
  Sender: FDA-Public Use
  Company Number: JP200608001085

PATIENT
  Age: 73 Year
  Sex: Female
  Weight: 52.5 kg

DRUGS (2)
  1. RALOXIFENE HYDROCHLORIDE(RALOXIFENE HYDROCLORIDE) TABLET [Suspect]
     Indication: OSTEOPOROSIS POSTMENOPAUSAL
     Dosage: 60 MG, DAILY (1/D), ORAL
     Route: 048
     Dates: start: 20050308, end: 20060108
  2. ARTZ (HYALURONATE SODIUM) [Concomitant]

REACTIONS (2)
  - DIZZINESS [None]
  - HOT FLUSH [None]
